FAERS Safety Report 13496684 (Version 2)
Quarter: 2017Q2

REPORT INFORMATION
  Report Type: Spontaneous
  Country: US (occurrence: US)
  Receive Date: 20170428
  Receipt Date: 20170428
  Transmission Date: 20170830
  Serious: No
  Sender: FDA-Public Use
  Company Number: US-JAZZ-2017-US-003703

PATIENT
  Sex: Female

DRUGS (16)
  1. XYREM [Suspect]
     Active Substance: SODIUM OXYBATE
     Dosage: DOSE ADJUSTMENT
     Route: 048
     Dates: start: 2011, end: 2013
  2. LYRICA [Concomitant]
     Active Substance: PREGABALIN
  3. AMBIEN [Concomitant]
     Active Substance: ZOLPIDEM TARTRATE
  4. XYREM [Suspect]
     Active Substance: SODIUM OXYBATE
     Indication: NARCOLEPSY
     Dosage: 2.25 G, BID
     Route: 048
     Dates: start: 201111, end: 2011
  5. ABILIFY [Concomitant]
     Active Substance: ARIPIPRAZOLE
  6. NUVIGIL [Concomitant]
     Active Substance: ARMODAFINIL
  7. INDOMETHACIN                       /00003801/ [Concomitant]
     Active Substance: INDOMETHACIN
  8. CYMBALTA [Concomitant]
     Active Substance: DULOXETINE HYDROCHLORIDE
  9. INDOMETHACIN                       /00003801/ [Concomitant]
     Active Substance: INDOMETHACIN
  10. IBUPROFEN. [Concomitant]
     Active Substance: IBUPROFEN
  11. ZONEGRAN [Concomitant]
     Active Substance: ZONISAMIDE
  12. NORTRIPTYLINE [Concomitant]
     Active Substance: NORTRIPTYLINE
  13. PREVACID [Concomitant]
     Active Substance: LANSOPRAZOLE
  14. PANTOPRAZOLE SODIUM. [Concomitant]
     Active Substance: PANTOPRAZOLE SODIUM
  15. XYREM [Suspect]
     Active Substance: SODIUM OXYBATE
     Dosage: 4 G, BID
     Route: 048
     Dates: start: 201310
  16. RESTASIS [Concomitant]
     Active Substance: CYCLOSPORINE

REACTIONS (2)
  - Sinusitis [Recovered/Resolved]
  - Laryngitis [Not Recovered/Not Resolved]
